FAERS Safety Report 5056697-9 (Version None)
Quarter: 2006Q2

REPORT INFORMATION
  Report Type: 
  Country: None (occurrence: None)
  Receive Date: 20060616
  Receipt Date: 20060327
  Transmission Date: 20061013
  Serious: No
  Sender: FDA-Public Use
  Company Number: 2006US000696

PATIENT
  Age: 57 Year
  Sex: Female

DRUGS (7)
  1. VESICARE [Suspect]
     Indication: INCONTINENCE
     Dosage: 5 MG, ORAL
     Route: 048
     Dates: start: 20060320
  2. FLUOXETINE [Concomitant]
  3. FLONASE [Concomitant]
  4. ADVAIR DISKUS 100/50 [Concomitant]
  5. HYDROCHLOROTHIAZIDE [Concomitant]
  6. TRAZODONE HCL [Concomitant]
  7. ALBUTEROL [Concomitant]

REACTIONS (2)
  - DRUG INEFFECTIVE [None]
  - HEADACHE [None]
